FAERS Safety Report 5443847-5 (Version None)
Quarter: 2007Q3

REPORT INFORMATION
  Report Type: 
  Country: None (occurrence: None)
  Receive Date: 20070905
  Receipt Date: 20070830
  Transmission Date: 20080115
  Serious: Yes (Death, Congenital Anomaly)
  Sender: FDA-Public Use
  Company Number: US-BOEHRINGER INGELHEIM PHARMACEUTICALS, INC.-2007-BP-17331BP

PATIENT
  Sex: Female

DRUGS (3)
  1. VIRAMUNE [Suspect]
     Indication: HIV INFECTION
     Route: 015
     Dates: start: 20070201
  2. SUSTIVA [Suspect]
     Indication: HIV INFECTION
     Route: 015
     Dates: end: 20070201
  3. TRUVADA [Suspect]
     Indication: HIV INFECTION
     Route: 015

REACTIONS (3)
  - DANDY-WALKER SYNDROME [None]
  - MULTIPLE CONGENITAL ABNORMALITIES [None]
  - SINGLE UMBILICAL ARTERY [None]
